FAERS Safety Report 17952693 (Version 12)
Quarter: 2021Q2

REPORT INFORMATION
  Report Type: Spontaneous
  Country: JP (occurrence: JP)
  Receive Date: 20200627
  Receipt Date: 20210624
  Transmission Date: 20210717
  Serious: Yes (Death, Hospitalization, Other)
  Sender: FDA-Public Use
  Company Number: JP-AMGEN-JPNSP2020100207

PATIENT
  Age: 82 Year
  Sex: Male
  Weight: 49.4 kg

DRUGS (20)
  1. PARSABIV [Suspect]
     Active Substance: ETELCALCETIDE HYDROCHLORIDE
     Dosage: 2.5 MG, Q56H
     Route: 010
     Dates: start: 20200421, end: 20200514
  2. PARSABIV [Suspect]
     Active Substance: ETELCALCETIDE HYDROCHLORIDE
     Dosage: 5 MG, Q56H
     Route: 010
     Dates: start: 20200516
  3. RIONA [Concomitant]
     Active Substance: FERRIC CITRATE ANHYDROUS
     Dosage: 250 MG, EVERYDAY
     Route: 065
     Dates: end: 20200307
  4. DARBEPOETIN ALFA [Concomitant]
     Active Substance: DARBEPOETIN ALFA
     Dosage: 40 UG, QW
     Route: 065
     Dates: start: 20190921, end: 20191102
  5. EVRENZO [Concomitant]
     Active Substance: ROXADUSTAT
     Dosage: 200 MG, QW
     Route: 048
     Dates: start: 20201013, end: 20201017
  6. ALFACALCIDOL [Concomitant]
     Active Substance: ALFACALCIDOL
     Dosage: 0.25 UG
     Route: 048
     Dates: end: 20190319
  7. EVRENZO [Concomitant]
     Active Substance: ROXADUSTAT
     Dosage: 200 MG, QW
     Route: 048
     Dates: start: 20200929, end: 20201003
  8. PARSABIV [Suspect]
     Active Substance: ETELCALCETIDE HYDROCHLORIDE
     Indication: HYPERPARATHYROIDISM SECONDARY
     Dosage: 2.5 MILLIGRAM, QWK
     Route: 010
     Dates: start: 20191012, end: 20191212
  9. DARBEPOETIN ALFA [Concomitant]
     Active Substance: DARBEPOETIN ALFA
     Dosage: 60 UG, QW
     Route: 065
     Dates: start: 20191109, end: 20200229
  10. DARBEPOETIN ALFA [Concomitant]
     Active Substance: DARBEPOETIN ALFA
     Dosage: 30 UG, QW
     Route: 065
     Dates: start: 20200711, end: 20200718
  11. ALFACALCIDOL [Concomitant]
     Active Substance: ALFACALCIDOL
     Dosage: 0.25 UG, EVERYDAY
     Route: 048
     Dates: start: 20190622
  12. RIONA [Concomitant]
     Active Substance: FERRIC CITRATE ANHYDROUS
     Dosage: 750 MG, EVERYDAY
     Route: 065
     Dates: start: 20200308, end: 20200321
  13. RIONA [Concomitant]
     Active Substance: FERRIC CITRATE ANHYDROUS
     Dosage: 1500 MG, EVERYDAY
     Route: 065
     Dates: start: 20200322, end: 20200723
  14. EVRENZO [Concomitant]
     Active Substance: ROXADUSTAT
     Dosage: 300 MG, QW
     Route: 048
     Dates: start: 20200723, end: 20200926
  15. PARSABIV [Suspect]
     Active Substance: ETELCALCETIDE HYDROCHLORIDE
     Dosage: 2.5 MILLIGRAM,Q84H
     Route: 010
     Dates: start: 20191214, end: 20200418
  16. DARBEPOETIN ALFA [Concomitant]
     Active Substance: DARBEPOETIN ALFA
     Dosage: 20 UG, QW
     Route: 065
     Dates: start: 20200307, end: 20200704
  17. PRECIPITATED CALCIUM CARBONATE [Concomitant]
     Active Substance: CALCIUM CARBONATE
     Dosage: 1500 MG, EVERYDAY
     Route: 065
  18. EVRENZO [Concomitant]
     Active Substance: ROXADUSTAT
     Dosage: 150 MG, QW
     Route: 048
     Dates: start: 20201006, end: 20201010
  19. EVRENZO [Concomitant]
     Active Substance: ROXADUSTAT
     Dosage: 250 MG, QW
     Route: 048
     Dates: start: 20201020
  20. DARBEPOETIN ALFA [Concomitant]
     Active Substance: DARBEPOETIN ALFA
     Dosage: 40 MICROGRAM, QWK
     Route: 065
     Dates: start: 20190921, end: 20191102

REACTIONS (5)
  - Decreased activity [Unknown]
  - Angina unstable [Recovered/Resolved]
  - Pneumonia bacterial [Fatal]
  - Angina unstable [Recovered/Resolved]
  - SARS-CoV-2 test positive [Recovered/Resolved]

NARRATIVE: CASE EVENT DATE: 20191111
